FAERS Safety Report 20132017 (Version 1)
Quarter: 2021Q4

REPORT INFORMATION
  Report Type: Spontaneous
  Country: US (occurrence: US)
  Receive Date: 20211130
  Receipt Date: 20211130
  Transmission Date: 20220303
  Serious: Yes (Other)
  Sender: FDA-Public Use
  Company Number: US-PFIZER INC-202101604827

PATIENT
  Age: 75 Year
  Sex: Female

DRUGS (1)
  1. XELJANZ XR [Suspect]
     Active Substance: TOFACITINIB CITRATE
     Indication: Rheumatoid arthritis
     Dosage: 11 MG, DAILY
     Route: 048
     Dates: start: 20211115

REACTIONS (6)
  - Hypertension [Unknown]
  - Heart rate irregular [Unknown]
  - Heart rate abnormal [Unknown]
  - Nausea [Unknown]
  - Dizziness [Unknown]
  - Chronic obstructive pulmonary disease [Unknown]
